FAERS Safety Report 21688320 (Version 4)
Quarter: 2023Q1

REPORT INFORMATION
  Report Type: Report from Study
  Country: US (occurrence: US)
  Receive Date: 20221206
  Receipt Date: 20230222
  Transmission Date: 20230418
  Serious: Yes (Other)
  Sender: FDA-Public Use
  Company Number: US-002147023-NVSC2022US282773

PATIENT
  Sex: Female

DRUGS (1)
  1. COSENTYX [Suspect]
     Active Substance: SECUKINUMAB
     Indication: Psoriasis
     Dosage: 300 MG, QW
     Route: 058
     Dates: start: 20221109

REACTIONS (7)
  - Oxygen saturation decreased [Recovering/Resolving]
  - Stress [Unknown]
  - Hypertension [Unknown]
  - Dandruff [Unknown]
  - Psoriasis [Recovering/Resolving]
  - Skin exfoliation [Unknown]
  - Pruritus [Unknown]
